FAERS Safety Report 21879371 (Version 1)
Quarter: 2023Q1

REPORT INFORMATION
  Report Type: Spontaneous
  Country: None (occurrence: US)
  Receive Date: 20230118
  Receipt Date: 20230118
  Transmission Date: 20230418
  Serious: No
  Sender: FDA-Public Use
  Company Number: US-Ricola USA Inc.-2136832

PATIENT
  Age: 40 Year
  Sex: Female

DRUGS (1)
  1. SUGAR FREE LEMON MINT HERB THROAT DROPS [Suspect]
     Active Substance: MENTHOL
     Indication: Oropharyngeal pain
     Route: 048
     Dates: start: 20230108, end: 20230108

REACTIONS (1)
  - Anaphylactic reaction [Recovered/Resolved]

NARRATIVE: CASE EVENT DATE: 20230108
